FAERS Safety Report 20688306 (Version 1)
Quarter: 2022Q2

REPORT INFORMATION
  Report Type: Spontaneous
  Country: CN (occurrence: None)
  Receive Date: 20220408
  Receipt Date: 20220408
  Transmission Date: 20220721
  Serious: Yes (Other)
  Sender: FDA-Public Use
  Company Number: CN-ROCHE-3067809

PATIENT
  Age: 72 Year
  Sex: Female

DRUGS (13)
  1. MABTHERA [Suspect]
     Active Substance: RITUXIMAB
     Indication: Follicular lymphoma
     Dosage: FOR 3 CYCLES
     Route: 065
  2. MABTHERA [Suspect]
     Active Substance: RITUXIMAB
     Dosage: FOR 1 CYCLE
     Route: 065
  3. GAZYVA [Suspect]
     Active Substance: OBINUTUZUMAB
     Indication: Follicular lymphoma
     Dosage: CYCLE 1 GIVEN FOR DAY1,8,15
     Route: 065
     Dates: start: 20211208
  4. GAZYVA [Suspect]
     Active Substance: OBINUTUZUMAB
     Dosage: CYCLE 2 GIVEN FOR DAY1
     Route: 065
  5. CYCLOPHOSPHAMIDE [Concomitant]
     Active Substance: CYCLOPHOSPHAMIDE
     Indication: Follicular lymphoma
     Dosage: FOR 3 CYCLES
  6. CYCLOPHOSPHAMIDE [Concomitant]
     Active Substance: CYCLOPHOSPHAMIDE
     Dosage: FOR 1 CYCLE
  7. EPIRUBICIN [Concomitant]
     Active Substance: EPIRUBICIN
     Indication: Follicular lymphoma
     Dosage: FOR 3 CYCLES
  8. EPIRUBICIN [Concomitant]
     Active Substance: EPIRUBICIN
     Dosage: FOR 1 CYCLE
  9. VINCRISTINE [Concomitant]
     Active Substance: VINCRISTINE
     Indication: Follicular lymphoma
     Dosage: FOR 3 CYCLES
  10. VINCRISTINE [Concomitant]
     Active Substance: VINCRISTINE
     Dosage: FOR 1 CYCLE
  11. PREDNISONE [Concomitant]
     Active Substance: PREDNISONE
     Indication: Follicular lymphoma
     Dosage: FOR 3 CYCLES
  12. PREDNISONE [Concomitant]
     Active Substance: PREDNISONE
     Dosage: FOR 1 CYCLE
  13. BENDAMUSTINE [Concomitant]
     Active Substance: BENDAMUSTINE
     Indication: Follicular lymphoma
     Dosage: FOR DAY2,3
     Dates: start: 20211208

REACTIONS (2)
  - Infusion related reaction [Recovered/Resolved]
  - Myelosuppression [Recovering/Resolving]
